FAERS Safety Report 17202426 (Version 1)
Quarter: 2019Q4

REPORT INFORMATION
  Report Type: Spontaneous
  Country: US (occurrence: US)
  Receive Date: 20191204
  Receipt Date: 20191204
  Transmission Date: 20200122
  Serious: Yes (Hospitalization)
  Sender: FDA-Public Use
  Company Number: None

PATIENT
  Sex: Male
  Weight: 73.9 kg

DRUGS (1)
  1. NALOXEGOL OXALATE. [Suspect]
     Active Substance: NALOXEGOL OXALATE

REACTIONS (2)
  - Disease progression [None]
  - Haemoptysis [None]

NARRATIVE: CASE EVENT DATE: 20191128
